FAERS Safety Report 19474295 (Version 1)
Quarter: 2021Q2

REPORT INFORMATION
  Report Type: Spontaneous
  Country: BE (occurrence: BE)
  Receive Date: 20210629
  Receipt Date: 20210629
  Transmission Date: 20210717
  Serious: Yes (Other)
  Sender: FDA-Public Use
  Company Number: BE-PFIZER INC-2021720656

PATIENT
  Age: 41 Year
  Sex: Male

DRUGS (3)
  1. VORICONAZOLE. [Suspect]
     Active Substance: VORICONAZOLE
     Indication: FUNGAL INFECTION
  2. RUXOLITINIB [Concomitant]
     Active Substance: RUXOLITINIB
     Indication: IMMUNOSUPPRESSANT DRUG THERAPY
     Dosage: UNK
  3. VORICONAZOLE. [Suspect]
     Active Substance: VORICONAZOLE
     Indication: EMPYEMA
     Dosage: UNK
     Dates: start: 202106

REACTIONS (3)
  - Drug ineffective for unapproved indication [Unknown]
  - Cerebral artery embolism [Recovering/Resolving]
  - Off label use [Unknown]

NARRATIVE: CASE EVENT DATE: 202106
